FAERS Safety Report 5424987-3 (Version None)
Quarter: 2007Q3

REPORT INFORMATION
  Report Type: 
  Country: None (occurrence: None)
  Receive Date: 20070824
  Receipt Date: 20070820
  Transmission Date: 20080115
  Serious: Yes (Other)
  Sender: FDA-Public Use
  Company Number: B0484385A

PATIENT
  Age: 41 Year
  Sex: Female
  Weight: 108 kg

DRUGS (1)
  1. ROSIGLITAZONE [Suspect]
     Route: 048
     Dates: start: 20010101, end: 20070601

REACTIONS (2)
  - BENIGN INTRACRANIAL HYPERTENSION [None]
  - PAPILLOEDEMA [None]
